FAERS Safety Report 5646905-5 (Version None)
Quarter: 2008Q1

REPORT INFORMATION
  Report Type: 
  Country: None (occurrence: None)
  Receive Date: 20080303
  Receipt Date: 20080222
  Transmission Date: 20080703
  Serious: Yes (Hospitalization)
  Sender: FDA-Public Use
  Company Number: PL-ELI_LILLY_AND_COMPANY-PL200802005749

PATIENT
  Sex: Female
  Weight: 71 kg

DRUGS (4)
  1. ALIMTA [Suspect]
     Indication: PLEURAL MESOTHELIOMA
     Dosage: 895 MG, UNK
     Route: 042
     Dates: start: 20071218, end: 20080130
  2. CISPLATIN [Concomitant]
     Dosage: 120 MG, UNKNOWN
     Route: 042
     Dates: start: 20071218
  3. MST [Concomitant]
     Indication: PAIN
     Dosage: 60 MG, UNKNOWN
     Route: 048
     Dates: start: 20071201
  4. ACETAMINOPHEN [Concomitant]
     Indication: PAIN
     Dosage: 2 G, UNKNOWN
     Route: 048
     Dates: start: 20071001

REACTIONS (2)
  - DIABETES INSIPIDUS [None]
  - OEDEMA PERIPHERAL [None]
